FAERS Safety Report 4845063-4 (Version None)
Quarter: 2005Q4

REPORT INFORMATION
  Report Type: 
  Country: None (occurrence: None)
  Receive Date: 20051115
  Receipt Date: 20050912
  Transmission Date: 20060501
  Serious: Yes (Hospitalization)
  Sender: FDA-Public Use
  Company Number: 417643

PATIENT
  Age: 56 Year
  Sex: Female
  Weight: 77.1 kg

DRUGS (3)
  1. PEGASYS [Suspect]
     Indication: HEPATITIS C VIRUS
     Dosage: 180 MCG 1 PER WEEK SUBCUTANEOUS
     Route: 058
     Dates: start: 20050325, end: 20050515
  2. RIBAVIRIN [Suspect]
     Indication: HEPATITIS C VIRUS
     Dosage: 1000 MG DAILY ORAL
     Route: 048
     Dates: start: 20050325, end: 20050515
  3. LISINOPRIL [Concomitant]

REACTIONS (7)
  - ANAEMIA [None]
  - ASTHENIA [None]
  - BLOOD GLUCOSE DECREASED [None]
  - EPISTAXIS [None]
  - HYPERHIDROSIS [None]
  - PLATELET COUNT DECREASED [None]
  - VISUAL DISTURBANCE [None]
